FAERS Safety Report 9751558 (Version 1)
Quarter: 2013Q4

REPORT INFORMATION
  Report Type: Spontaneous
  Country: US (occurrence: US)
  Receive Date: 20131212
  Receipt Date: 20131212
  Transmission Date: 20140711
  Serious: No
  Sender: FDA-Public Use
  Company Number: US-PURDUE-USA-2013-0104836

PATIENT
  Age: 57 Year
  Sex: Female

DRUGS (4)
  1. DILAUDID TABLET [Suspect]
     Indication: PAIN
     Route: 048
  2. OXYCODONE HYDROCHLORIDE (SIMILAR TO NDA 22-272) [Suspect]
     Indication: PAIN
     Route: 048
  3. NORCO [Suspect]
     Indication: PAIN
     Route: 065
  4. VICODIN [Suspect]
     Indication: PAIN
     Route: 065

REACTIONS (1)
  - Fluid replacement [Unknown]
